FAERS Safety Report 20734946 (Version 2)
Quarter: 2022Q2

REPORT INFORMATION
  Report Type: Spontaneous
  Country: CN (occurrence: CN)
  Receive Date: 20220421
  Receipt Date: 20220425
  Transmission Date: 20220721
  Serious: No
  Sender: FDA-Public Use
  Company Number: CN-GLAXOSMITHKLINE-CN2022APC066364

PATIENT
  Age: 67 Year
  Sex: Male
  Weight: 50 kg

DRUGS (1)
  1. ALBUTEROL SULFATE [Suspect]
     Active Substance: ALBUTEROL SULFATE
     Indication: Dyspnoea
     Dosage: 100 UG, TID
     Route: 055
     Dates: start: 20220319, end: 20220319

REACTIONS (2)
  - Palpitations [Recovering/Resolving]
  - Heart rate increased [Recovered/Resolved]

NARRATIVE: CASE EVENT DATE: 20220319
